FAERS Safety Report 8756895 (Version 2)
Quarter: 2013Q4

REPORT INFORMATION
  Report Type: Spontaneous
  Country: US (occurrence: US)
  Receive Date: 20120828
  Receipt Date: 20131101
  Transmission Date: 20140711
  Serious: No
  Sender: FDA-Public Use
  Company Number: US-009507513-1208USA005868

PATIENT
  Age: 32 Year
  Sex: Female
  Weight: 47.62 kg

DRUGS (4)
  1. IMPLANON [Suspect]
     Indication: CONTRACEPTION
     Dosage: 1 ROD UPTO 3 YEARS
     Route: 059
     Dates: start: 20111220
  2. VITAMINS (UNSPECIFIED) [Concomitant]
  3. IBUPROFEN [Concomitant]
     Indication: HEADACHE
  4. IBUPROFEN [Concomitant]
     Indication: PAIN

REACTIONS (8)
  - Muscle spasms [Unknown]
  - Urinary tract infection [Recovered/Resolved]
  - Urinary tract infection [Unknown]
  - Menorrhagia [Unknown]
  - Back pain [Unknown]
  - Mood swings [Unknown]
  - Metrorrhagia [Unknown]
  - Pyrexia [Unknown]
